FAERS Safety Report 13344265 (Version 1)
Quarter: 2017Q1

REPORT INFORMATION
  Report Type: Spontaneous
  Country: AU (occurrence: AU)
  Receive Date: 20170317
  Receipt Date: 20170317
  Transmission Date: 20170428
  Serious: Yes (Other)
  Sender: FDA-Public Use
  Company Number: AU-CONCORDIA PHARMACEUTICALS INC.-GSH201703-001566

PATIENT
  Sex: Female

DRUGS (14)
  1. PREDNISOLONE. [Suspect]
     Active Substance: PREDNISOLONE
  2. PRAMIPEXOLE HYDROCHLORIDE [Suspect]
     Active Substance: PRAMIPEXOLE DIHYDROCHLORIDE
  3. OXYCODONE [Suspect]
     Active Substance: OXYCODONE
  4. PARACETAMOL [Suspect]
     Active Substance: ACETAMINOPHEN
  5. BUDESONIDE. [Suspect]
     Active Substance: BUDESONIDE
  6. ROSUVASTATIN. [Suspect]
     Active Substance: ROSUVASTATIN
  7. DULOXETINE. [Suspect]
     Active Substance: DULOXETINE
  8. SALBUTAMOL [Suspect]
     Active Substance: ALBUTEROL
  9. TIOTROPIUM [Suspect]
     Active Substance: TIOTROPIUM
  10. MELOXICAM. [Suspect]
     Active Substance: MELOXICAM
  11. RIVAROXABAN [Suspect]
     Active Substance: RIVAROXABAN
  12. SPIRONOLACTONE. [Suspect]
     Active Substance: SPIRONOLACTONE
  13. FRUSEMIDE [Suspect]
     Active Substance: FUROSEMIDE
  14. PREGABALIN. [Suspect]
     Active Substance: PREGABALIN

REACTIONS (7)
  - Gastrointestinal haemorrhage [Unknown]
  - Dizziness [Unknown]
  - Dyspepsia [Unknown]
  - Fluid retention [Unknown]
  - Blood potassium decreased [Unknown]
  - Constipation [Unknown]
  - Dry mouth [Unknown]
